FAERS Safety Report 9927280 (Version 4)
Quarter: 2014Q2

REPORT INFORMATION
  Report Type: Spontaneous
  Country: US (occurrence: US)
  Receive Date: 20140226
  Receipt Date: 20140423
  Transmission Date: 20141212
  Serious: Yes (Hospitalization, Other)
  Sender: FDA-Public Use
  Company Number: US-RB-063772-14

PATIENT
  Age: 52 Year
  Sex: Male

DRUGS (14)
  1. SUBOXONE FILM [Suspect]
     Dosage: SUBOXONE FILM; TREATMENT WHILE IN DETOX FROM METHADONE
     Route: 060
     Dates: start: 201306, end: 201306
  2. SUBOXONE FILM [Suspect]
     Dosage: SUBOXONE FILM; TAPERING AND TAKING 1/4 TO 1/2 OF THE FILM INTERMITTENTLY FOR WITHDRAWAL FROM OPIOIDS
     Route: 060
     Dates: start: 201306, end: 201312
  3. SUBOXONE FILM [Suspect]
     Dosage: SUBOXONE FILM; 2 TO 8 MG IN THE A.M. AND 1 TO 8 MG IN THE P.M.
     Route: 060
     Dates: start: 20140105, end: 201401
  4. SUBOXONE FILM [Suspect]
     Dosage: SUBOXONE FILM; 2 TO 8 MG IN THE A.M. AND 1 TO 8 MG IN THE P.M.
     Route: 060
     Dates: start: 201401, end: 20140112
  5. SUBOXONE FILM [Suspect]
     Indication: DRUG DEPENDENCE
     Dosage: SUBOXONE FILM; TOOK THE LAST DOSE (1/2 OF THE FILM)
     Route: 060
     Dates: start: 20140218, end: 20140218
  6. OXYCODONE [Suspect]
     Indication: PAIN
     Dosage: UNKNOWN DOSING DETAILS
     Route: 048
     Dates: end: 20140218
  7. OXYCODONE [Suspect]
     Indication: PAIN
     Dosage: UNKNOWN DOSING DETAILS
     Route: 048
     Dates: end: 20140218
  8. PERC 30 [Suspect]
     Indication: PAIN
     Dosage: UNKNOWN DOSING DETAILS
     Route: 048
     Dates: start: 201306, end: 20140218
  9. PERC 30 [Suspect]
     Indication: PAIN
     Dosage: UNKNOWN DOSING DETAILS
     Route: 048
     Dates: start: 201306, end: 20140218
  10. VICODIN [Suspect]
     Indication: PAIN
     Dosage: UNKNOWN DAILY DOSE
     Route: 048
     Dates: start: 2005, end: 20140218
  11. VICODIN [Suspect]
     Indication: PAIN
     Dosage: UNKNOWN DAILY DOSE
     Route: 048
     Dates: start: 2005, end: 20140218
  12. MARIJUANA [Suspect]
     Indication: SUBSTANCE USE
     Dosage: UNKNOWN DOSING DETAILS
     Route: 055
     Dates: end: 20140218
  13. MARIJUANA [Suspect]
     Indication: SUBSTANCE USE
     Dosage: UNKNOWN DOSING DETAILS
     Route: 055
     Dates: end: 20140218
  14. COCAINE [Suspect]
     Indication: SUBSTANCE USE
     Dosage: UNKNOWN DOSING DETAILS
     Route: 045
     Dates: end: 20140218

REACTIONS (14)
  - Wrong technique in drug usage process [Recovered/Resolved]
  - Intentional product misuse [Recovered/Resolved]
  - Drug withdrawal syndrome [Recovered/Resolved]
  - Drug dependence [Recovered/Resolved]
  - Dizziness postural [Not Recovered/Not Resolved]
  - Arthralgia [Not Recovered/Not Resolved]
  - Condition aggravated [Not Recovered/Not Resolved]
  - Musculoskeletal pain [Not Recovered/Not Resolved]
  - Condition aggravated [Not Recovered/Not Resolved]
  - Drug abuse [Recovered/Resolved]
  - Abdominal pain upper [Recovered/Resolved]
  - Volvulus [Recovered/Resolved]
  - Ileus [Recovered/Resolved]
  - Detoxification [Recovered/Resolved]
